FAERS Safety Report 13960997 (Version 2)
Quarter: 2017Q3

REPORT INFORMATION
  Report Type: Report from Study
  Country: US (occurrence: US)
  Receive Date: 20170912
  Receipt Date: 20170919
  Transmission Date: 20171128
  Serious: Yes (Hospitalization)
  Sender: FDA-Public Use
  Company Number: US-JNJFOC-20170907873

PATIENT
  Age: 86 Year
  Sex: Male

DRUGS (14)
  1. METOPROLOL. [Concomitant]
     Active Substance: METOPROLOL
  2. DICLOFENAC [Concomitant]
     Active Substance: DICLOFENAC
  3. FERROUS SULFATE. [Concomitant]
     Active Substance: FERROUS SULFATE
  4. IMBRUVICA [Suspect]
     Active Substance: IBRUTINIB
     Indication: WALDENSTROM^S MACROGLOBULINAEMIA
     Route: 048
     Dates: start: 20170629
  5. LATANOPROST. [Concomitant]
     Active Substance: LATANOPROST
  6. TERAZOSIN [Concomitant]
     Active Substance: TERAZOSIN\TERAZOSIN HYDROCHLORIDE
  7. ALLOPURINOL. [Concomitant]
     Active Substance: ALLOPURINOL
  8. MULTIVITAMINS [Concomitant]
     Active Substance: VITAMINS
  9. DORZOLAMIDE [Concomitant]
     Active Substance: DORZOLAMIDE
  10. IMBRUVICA [Suspect]
     Active Substance: IBRUTINIB
     Indication: WALDENSTROM^S MACROGLOBULINAEMIA
     Route: 048
     Dates: start: 20170628, end: 2017
  11. ASPIRIN. [Concomitant]
     Active Substance: ASPIRIN
  12. SIMVASTATIN. [Concomitant]
     Active Substance: SIMVASTATIN
  13. DORZOLAMIDE HYDROCHLORIDE AND TIMOLOL MALEATE [Concomitant]
     Active Substance: DORZOLAMIDE HYDROCHLORIDE\TIMOLOL MALEATE
  14. TIROSINT [Concomitant]
     Active Substance: LEVOTHYROXINE SODIUM

REACTIONS (4)
  - Weight decreased [Recovered/Resolved]
  - Rash macular [Not Recovered/Not Resolved]
  - Dehydration [Recovered/Resolved]
  - Hypophagia [Unknown]

NARRATIVE: CASE EVENT DATE: 20170629
